FAERS Safety Report 5893367-9 (Version None)
Quarter: 2008Q3

REPORT INFORMATION
  Report Type: 
  Country: None (occurrence: None)
  Receive Date: 20080919
  Receipt Date: 20080909
  Transmission Date: 20090109
  Serious: Yes (Hospitalization)
  Sender: FDA-Public Use
  Company Number: US022207

PATIENT
  Age: 23 Year
  Sex: Female
  Weight: 35.8 kg

DRUGS (7)
  1. MODAFINIL [Suspect]
     Indication: NARCOLEPSY
     Dosage: 100 MG QD ORAL
     Route: 048
     Dates: start: 20070920, end: 20071001
  2. MODAFINIL [Suspect]
     Indication: NARCOLEPSY
     Dosage: 300 MG QD ORAL
     Route: 048
     Dates: start: 20071002, end: 20071103
  3. LEXOTAN [Concomitant]
  4. MYSLEE [Concomitant]
  5. DOGMATYL [Concomitant]
  6. SEROQUEL [Concomitant]
  7. MAXALT /01406502/ [Concomitant]

REACTIONS (7)
  - ADJUSTMENT DISORDER [None]
  - ANOREXIA [None]
  - CACHEXIA [None]
  - CATAPLEXY [None]
  - DRUG EFFECT DECREASED [None]
  - JOB DISSATISFACTION [None]
  - SOMATOFORM DISORDER [None]
